FAERS Safety Report 6565651-7 (Version None)
Quarter: 2010Q1

REPORT INFORMATION
  Report Type: 
  Country: None (occurrence: None)
  Receive Date: 20100201
  Receipt Date: 20100126
  Transmission Date: 20100710
  Serious: Yes (Life-Threatening, Hospitalization)
  Sender: FDA-Public Use
  Company Number: DE-B.I. PHARMACEUTICALS,INC./RIDGEFIELD-2010-BP-01158YA

PATIENT
  Age: 78 Year
  Sex: Male
  Weight: 90 kg

DRUGS (4)
  1. TAMSULOSIN [Suspect]
     Indication: BENIGN PROSTATIC HYPERPLASIA
     Route: 048
     Dates: end: 20090415
  2. FALITHROM [Suspect]
     Indication: ATRIAL FIBRILLATION
     Route: 048
     Dates: end: 20090415
  3. DIOVAN HCT [Suspect]
     Indication: HYPERTENSION
     Route: 048
     Dates: end: 20090415
  4. TORASEMIDE [Suspect]
     Indication: HYPERTENSION
     Route: 048
     Dates: end: 20090415

REACTIONS (1)
  - PANCREATITIS ACUTE [None]
